FAERS Safety Report 22084443 (Version 1)
Quarter: 2023Q1

REPORT INFORMATION
  Report Type: Spontaneous
  Country: US (occurrence: US)
  Receive Date: 20230310
  Receipt Date: 20230310
  Transmission Date: 20230418
  Serious: No
  Sender: FDA-Public Use
  Company Number: US-NIPPON SHINYAKU-NIP-2023-000008

PATIENT
  Age: 8 Year
  Sex: Male
  Weight: 44.898 kg

DRUGS (5)
  1. VILTEPSO [Suspect]
     Active Substance: VILTOLARSEN
     Indication: Duchenne muscular dystrophy
     Dosage: 3600 MG, QWK
     Route: 042
     Dates: start: 20220523
  2. VILTEPSO [Suspect]
     Active Substance: VILTOLARSEN
     Dosage: UNK
     Route: 042
     Dates: start: 20230214
  3. CLONIDINE [Concomitant]
     Active Substance: CLONIDINE
     Indication: Product used for unknown indication
     Dosage: 0.1 MG, BID
     Route: 048
     Dates: start: 20220815
  4. EMFLAZA [Concomitant]
     Active Substance: DEFLAZACORT
     Indication: Product used for unknown indication
     Dosage: 36 MG, QD
     Route: 048
     Dates: start: 20220815
  5. FAMOTIDINE [Concomitant]
     Active Substance: FAMOTIDINE
     Indication: Product used for unknown indication
     Dosage: 3 ML, QD
     Route: 048
     Dates: start: 20220815

REACTIONS (1)
  - Upper limb fracture [Unknown]

NARRATIVE: CASE EVENT DATE: 20230207
